FAERS Safety Report 6752952-2 (Version None)
Quarter: 2010Q2

REPORT INFORMATION
  Report Type: 
  Country: None (occurrence: None)
  Receive Date: 20100603
  Receipt Date: 20100526
  Transmission Date: 20101027
  Serious: Yes (Death, Other)
  Sender: FDA-Public Use
  Company Number: ES-CELGENEUS-144-50794-10051666

PATIENT
  Age: 60 Year
  Sex: Male
  Weight: 64 kg

DRUGS (1)
  1. VIDAZA [Suspect]
     Route: 058
     Dates: end: 20100409

REACTIONS (3)
  - DISEASE PROGRESSION [None]
  - FEBRILE NEUTROPENIA [None]
  - MYELODYSPLASTIC SYNDROME [None]
